FAERS Safety Report 5492885-5 (Version None)
Quarter: 2007Q4

REPORT INFORMATION
  Report Type: 
  Country: None (occurrence: None)
  Receive Date: 20071023
  Receipt Date: 20071017
  Transmission Date: 20080405
  Serious: Yes (Other)
  Sender: FDA-Public Use
  Company Number: US-ASTRAZENECA-2007UW21627

PATIENT
  Age: 66 Year
  Sex: Female
  Weight: 80.9 kg

DRUGS (2)
  1. NEXIUM [Suspect]
     Route: 048
     Dates: start: 20070723, end: 20070911
  2. SYNTHROID [Concomitant]

REACTIONS (5)
  - DRUG INEFFECTIVE [None]
  - PRURITUS [None]
  - RASH [None]
  - REGURGITATION [None]
  - SWELLING [None]
